FAERS Safety Report 6006142-1 (Version None)
Quarter: 2008Q4

REPORT INFORMATION
  Report Type: 
  Country: None (occurrence: None)
  Receive Date: 20081217
  Receipt Date: 20080514
  Transmission Date: 20090506
  Serious: No
  Sender: FDA-Public Use
  Company Number: US-BAUSCH-2008BL002176

PATIENT
  Age: 48 Year
  Sex: Female

DRUGS (1)
  1. ZYLET [Suspect]
     Indication: CONJUNCTIVITIS INFECTIVE
     Route: 047
     Dates: start: 20080506, end: 20080508

REACTIONS (2)
  - ABNORMAL SENSATION IN EYE [None]
  - EYE DISCHARGE [None]
